FAERS Safety Report 11716301 (Version 2)
Quarter: 2015Q4

REPORT INFORMATION
  Report Type: Spontaneous
  Country: CR (occurrence: CR)
  Receive Date: 20151109
  Receipt Date: 20151218
  Transmission Date: 20160304
  Serious: Yes (Disabling)
  Sender: FDA-Public Use
  Company Number: CR-ALLERGAN-1522657US

PATIENT
  Sex: Male

DRUGS (3)
  1. PREDNEFRIN FORTE [Concomitant]
     Active Substance: PHENYLEPHRINE HYDROCHLORIDE\PREDNISOLONE ACETATE
     Indication: POSTOPERATIVE ANALGESIA
     Route: 047
  2. ACULAR LS [Suspect]
     Active Substance: KETOROLAC TROMETHAMINE
     Indication: POSTOPERATIVE ANALGESIA
     Dosage: UNK
     Route: 047
  3. VIGAMOX [Concomitant]
     Active Substance: MOXIFLOXACIN HYDROCHLORIDE
     Indication: POSTOPERATIVE ANALGESIA

REACTIONS (1)
  - Toxic anterior segment syndrome [Recovered/Resolved]
